FAERS Safety Report 7015365-4 (Version None)
Quarter: 2010Q3

REPORT INFORMATION
  Report Type: 
  Country: None (occurrence: None)
  Receive Date: 20100927
  Receipt Date: 20100916
  Transmission Date: 20110219
  Serious: Yes (Hospitalization, Other)
  Sender: FDA-Public Use
  Company Number: US-SANOFI-AVENTIS-2010SA051720

PATIENT
  Age: 63 Year
  Sex: Female

DRUGS (4)
  1. LOVENOX [Suspect]
     Route: 058
     Dates: start: 20100105
  2. LOVENOX [Suspect]
     Route: 065
     Dates: start: 20100101
  3. COUMADIN [Concomitant]
  4. DURAGESIC-100 [Concomitant]

REACTIONS (10)
  - ASTHMA [None]
  - CHRONIC OBSTRUCTIVE PULMONARY DISEASE [None]
  - DRUG INEFFECTIVE [None]
  - INJECTION SITE NODULE [None]
  - INJECTION SITE PAIN [None]
  - MALIGNANT PLEURAL EFFUSION [None]
  - MYOCARDIAL INFARCTION [None]
  - PLEURAL EFFUSION [None]
  - PULMONARY EMBOLISM [None]
  - SUPRAVENTRICULAR TACHYCARDIA [None]
